FAERS Safety Report 6687590-3 (Version None)
Quarter: 2010Q2

REPORT INFORMATION
  Report Type: 
  Country: None (occurrence: None)
  Receive Date: 20100416
  Receipt Date: 20100416
  Transmission Date: 20101027
  Serious: Yes (Hospitalization)
  Sender: FDA-Public Use
  Company Number: None

PATIENT
  Sex: Male
  Weight: 67.9035 kg

DRUGS (2)
  1. BEVACIZUMAB 15 MG/KG 15 MG/KG [Suspect]
     Indication: LUNG ADENOCARCINOMA
     Dosage: BEVACIZUMAB 15 MG/KG -1040 MG IV DRIP
     Route: 041
     Dates: start: 20100324, end: 20100324
  2. ERLOTINIB 150 MG 150 MG [Suspect]
     Indication: LUNG ADENOCARCINOMA
     Dosage: ERLOTINIB 150 MG PO (ONCE DAILY)
     Route: 048
     Dates: start: 20100324, end: 20100408

REACTIONS (13)
  - ASTHENIA [None]
  - DIARRHOEA [None]
  - DYSPNOEA EXERTIONAL [None]
  - EXCORIATION [None]
  - HEART RATE INCREASED [None]
  - HYPOPHAGIA [None]
  - ILEUS [None]
  - NAUSEA [None]
  - OXYGEN SATURATION DECREASED [None]
  - PULSE ABNORMAL [None]
  - PULSE PRESSURE DECREASED [None]
  - RASH [None]
  - RASH ERYTHEMATOUS [None]
